FAERS Safety Report 4543935-1 (Version None)
Quarter: 2005Q1

REPORT INFORMATION
  Report Type: 
  Country: None (occurrence: None)
  Receive Date: 20050104
  Receipt Date: 20041227
  Transmission Date: 20050727
  Serious: Yes (Other)
  Sender: FDA-Public Use
  Company Number: US-JNJFOC-20041006889

PATIENT
  Age: 85 Year
  Sex: Female
  Weight: 63.5 kg

DRUGS (3)
  1. LEVAQUIN [Suspect]
     Indication: PNEUMONIA
  2. EYE DROPS [Concomitant]
     Indication: GLAUCOMA
  3. ANTI HYPERTENSIVE [Concomitant]

REACTIONS (4)
  - AGEUSIA [None]
  - ORAL CANDIDIASIS [None]
  - ORAL DISCOMFORT [None]
  - WEIGHT DECREASED [None]
